FAERS Safety Report 13111258 (Version 1)
Quarter: 2017Q1

REPORT INFORMATION
  Report Type: Spontaneous
  Country: GB (occurrence: GB)
  Receive Date: 20170112
  Receipt Date: 20170112
  Transmission Date: 20170428
  Serious: Yes (Other)
  Sender: FDA-Public Use
  Company Number: GB-NOVOPROD-518799

PATIENT
  Age: 51 Year
  Sex: Female
  Weight: 54 kg

DRUGS (5)
  1. LEVEMIR [Concomitant]
     Active Substance: INSULIN DETEMIR
     Indication: TYPE 1 DIABETES MELLITUS
  2. ESTRADERM [Concomitant]
     Active Substance: ESTRADIOL
     Indication: HORMONE REPLACEMENT THERAPY
  3. NOVORAPID [Suspect]
     Active Substance: INSULIN ASPART
     Indication: TYPE 1 DIABETES MELLITUS
     Dosage: MAXIMUM OF 15 UNITS (BOLUS AND BASAL)
     Route: 058
     Dates: start: 201501, end: 201609
  4. NOVORAPID [Concomitant]
     Active Substance: INSULIN ASPART
     Indication: TYPE 1 DIABETES MELLITUS
  5. VENLAFAXINE [Concomitant]
     Active Substance: VENLAFAXINE HYDROCHLORIDE

REACTIONS (6)
  - Hypoglycaemia unawareness [Recovered/Resolved]
  - Hypoglycaemia unawareness [Recovered/Resolved]
  - Blood glucose fluctuation [Recovered/Resolved]
  - Hypoglycaemia unawareness [Recovered/Resolved]
  - Hypoglycaemia unawareness [Recovered/Resolved]
  - Hypoglycaemia unawareness [Recovered/Resolved]

NARRATIVE: CASE EVENT DATE: 2016
